FAERS Safety Report 7361128-X (Version None)
Quarter: 2011Q1

REPORT INFORMATION
  Report Type: 
  Country: None (occurrence: None)
  Receive Date: 20110315
  Receipt Date: 20110315
  Transmission Date: 20110831
  Serious: Yes (Disabling, Other)
  Sender: FDA-Public Use
  Company Number: None

PATIENT
  Sex: Female
  Weight: 68.0396 kg

DRUGS (2)
  1. REGLAN [Suspect]
     Indication: NAUSEA
     Dosage: 10 MG TABLETS 1 DAILY
     Dates: start: 20090401, end: 20100901
  2. REGLAN [Suspect]
     Dosage: I.V. EVERY 4 HR
     Route: 042

REACTIONS (3)
  - DYSKINESIA [None]
  - MIDDLE INSOMNIA [None]
  - TREMOR [None]
